FAERS Safety Report 6263314-9 (Version None)
Quarter: 2009Q3

REPORT INFORMATION
  Report Type: 
  Country: None (occurrence: None)
  Receive Date: 20090710
  Receipt Date: 20090515
  Transmission Date: 20100115
  Serious: No
  Sender: FDA-Public Use
  Company Number: A0784606A

PATIENT
  Age: 72 Year
  Sex: Female

DRUGS (2)
  1. REQUIP XL [Suspect]
     Indication: PARKINSON'S DISEASE
     Dosage: 8MG PER DAY
     Route: 048
     Dates: start: 20090417
  2. LEVOTHYROXINE SODIUM [Concomitant]

REACTIONS (2)
  - EMOTIONAL DISORDER [None]
  - TREMOR [None]
